FAERS Safety Report 7754286-6 (Version None)
Quarter: 2011Q3

REPORT INFORMATION
  Report Type: 
  Country: None (occurrence: None)
  Receive Date: 20110915
  Receipt Date: 20110906
  Transmission Date: 20111222
  Serious: Yes (Hospitalization, Other)
  Sender: FDA-Public Use
  Company Number: US-ELI_LILLY_AND_COMPANY-US201107002813

PATIENT
  Sex: Male

DRUGS (25)
  1. NEUROTIN                           /00949202/ [Concomitant]
     Dosage: 600 MG, EACH EVENING
     Route: 048
  2. ULTRAM [Concomitant]
     Indication: PAIN
     Dosage: 50 MG, PRN
     Route: 048
  3. BYETTA [Suspect]
     Indication: TYPE 2 DIABETES MELLITUS
     Dosage: 5 UG, BID
     Route: 058
     Dates: start: 20070319, end: 20100201
  4. FLOMAX [Concomitant]
     Indication: BENIGN PROSTATIC HYPERPLASIA
     Dosage: 0.4 MG, UNK
     Route: 048
  5. NEUROTIN                           /00949202/ [Concomitant]
     Indication: NEUROPATHY PERIPHERAL
     Dosage: 300 MG, EACH MORNING
     Route: 048
  6. SYMBICORT [Concomitant]
     Indication: DYSPNOEA
     Dosage: UNK, EACH EVENING
     Route: 055
  7. VITAMIN D2 [Concomitant]
     Indication: VITAMIN D DEFICIENCY
     Dosage: 50000 IU, WEEKLY (1/W)
     Route: 048
  8. VALIUM [Concomitant]
     Dosage: 2.5 MG, EACH EVENING
     Route: 048
  9. NOVOLOG [Concomitant]
     Indication: TYPE 2 DIABETES MELLITUS
     Dosage: UNK
     Route: 058
  10. LASIX [Concomitant]
     Indication: HYPERTENSION
     Dosage: 80 MG, QD
     Route: 048
     Dates: end: 20110401
  11. COZAAR [Concomitant]
     Indication: HYPERTENSION
     Dosage: 50 MG, QD
     Route: 048
  12. ALLOPURINOL [Concomitant]
     Indication: GOUT
     Dosage: 300 MG, UNK
     Route: 048
  13. GEMFIBROZIL [Concomitant]
     Indication: LIPIDS INCREASED
     Dosage: 300 MG, BID
     Route: 048
     Dates: end: 20110701
  14. PRAVASTATIN [Concomitant]
     Indication: LIPIDS INCREASED
     Dosage: 40 MG, QD
     Route: 048
     Dates: start: 20110301
  15. ASPIRIN [Concomitant]
     Indication: CARDIOVASCULAR EVENT PROPHYLAXIS
     Dosage: 81 MG, QD
  16. TOPROL-XL [Concomitant]
     Indication: HYPERTENSION
     Dosage: 50 MG, BID
     Route: 048
  17. PREVACID [Concomitant]
     Indication: GASTROOESOPHAGEAL REFLUX DISEASE
     Dosage: 20 MG, BID
     Route: 048
  18. LASIX [Concomitant]
     Dosage: 80 MG, BID
     Route: 048
     Dates: start: 20110401
  19. POTASSIUM [Concomitant]
     Dosage: UNK
     Route: 048
  20. VALIUM [Concomitant]
     Indication: ANXIETY
     Dosage: 5 MG, EACH MORNING
     Route: 048
  21. PRISTIQ [Concomitant]
     Indication: DEPRESSION
     Dosage: 50 MG, QD
     Route: 048
  22. RITALIN-SR [Concomitant]
     Indication: POOR QUALITY SLEEP
     Dosage: 20 MG, QD
  23. FLEXERIL [Concomitant]
     Indication: MYALGIA
     Dosage: 5 MG, PRN
     Route: 048
  24. BYETTA [Suspect]
     Dosage: 10 UG, BID
     Route: 058
     Dates: start: 20100201
  25. LORTAB [Concomitant]
     Indication: PAIN
     Dosage: UNK, PRN
     Route: 048

REACTIONS (6)
  - DIZZINESS [None]
  - OFF LABEL USE [None]
  - CORONARY ARTERY OCCLUSION [None]
  - NAUSEA [None]
  - BLOOD PRESSURE DECREASED [None]
  - VOMITING [None]
